FAERS Safety Report 14632064 (Version 3)
Quarter: 2018Q1

REPORT INFORMATION
  Report Type: Spontaneous
  Country: JP (occurrence: JP)
  Receive Date: 20180313
  Receipt Date: 20180327
  Transmission Date: 20180509
  Serious: Yes (Other)
  Sender: FDA-Public Use
  Company Number: PHJP2018JP005762

PATIENT
  Age: 64 Year
  Sex: Female

DRUGS (5)
  1. SANDIMMUN INFUSION [Suspect]
     Active Substance: CYCLOSPORINE
     Indication: INTERSTITIAL LUNG DISEASE
  2. OXYGEN. [Suspect]
     Active Substance: OXYGEN
     Indication: PNEUMATOSIS INTESTINALIS
     Dosage: UNK
     Route: 065
  3. SANDIMMUN INFUSION [Suspect]
     Active Substance: CYCLOSPORINE
     Indication: DERMATOMYOSITIS
     Dosage: 200 MG, QD
     Route: 041
     Dates: start: 20170410, end: 20170601
  4. CICLOSPORIN [Concomitant]
     Active Substance: CYCLOSPORINE
     Indication: DERMATOMYOSITIS
     Dosage: 150 MG, UNK
     Route: 048
     Dates: start: 20170403, end: 20170409
  5. SOL-MELCORT [Concomitant]
     Active Substance: METHYLPREDNISOLONE SODIUM SUCCINATE
     Indication: PRODUCT USED FOR UNKNOWN INDICATION
     Dosage: 500 MG, UNK
     Route: 065
     Dates: start: 20170406, end: 20170408

REACTIONS (3)
  - Pneumatosis intestinalis [Recovering/Resolving]
  - Pneumomediastinum [Recovering/Resolving]
  - Subcutaneous emphysema [Recovering/Resolving]

NARRATIVE: CASE EVENT DATE: 20170512
